FAERS Safety Report 5436712-0 (Version None)
Quarter: 2007Q3

REPORT INFORMATION
  Report Type: 
  Country: None (occurrence: None)
  Receive Date: 20070831
  Receipt Date: 20070821
  Transmission Date: 20080115
  Serious: Yes (Hospitalization)
  Sender: FDA-Public Use
  Company Number: US-JNJFOC-20070602770

PATIENT
  Sex: Female
  Weight: 61.24 kg

DRUGS (7)
  1. DURAGESIC-100 [Suspect]
     Route: 062
  2. DURAGESIC-100 [Suspect]
     Indication: COMPLEX REGIONAL PAIN SYNDROME
     Route: 062
  3. FENTANYL TRANSDERMAL SYSTEM [Suspect]
     Indication: COMPLEX REGIONAL PAIN SYNDROME
     Route: 062
  4. FENTANYL TRANSDERMAL SYSTEM [Suspect]
     Indication: COMPLEX REGIONAL PAIN SYNDROME
     Route: 062
  5. PERCOCET [Suspect]
     Indication: BREAKTHROUGH PAIN
     Dosage: 5/325MG AS NEEDED
     Route: 048
  6. COUMADIN [Suspect]
     Indication: CARDIAC FAILURE CONGESTIVE
     Route: 048
  7. LISINOPRIL [Concomitant]
     Indication: BLOOD PRESSURE INCREASED
     Route: 048

REACTIONS (8)
  - BLOOD URINE PRESENT [None]
  - BREAKTHROUGH PAIN [None]
  - CARDIAC FAILURE CONGESTIVE [None]
  - EPISTAXIS [None]
  - MOUTH HAEMORRHAGE [None]
  - NAUSEA [None]
  - PAIN [None]
  - THROMBOSIS [None]
